FAERS Safety Report 15779191 (Version 1)
Quarter: 2019Q1

REPORT INFORMATION
  Report Type: Spontaneous
  Country: US (occurrence: US)
  Receive Date: 20190101
  Receipt Date: 20190101
  Transmission Date: 20190417
  Serious: No
  Sender: FDA-Public Use
  Company Number: US-JNJFOC-20181222301

PATIENT
  Age: 4 Year
  Sex: Male

DRUGS (2)
  1. CHILDRENS MOTRIN [Suspect]
     Active Substance: IBUPROFEN
     Route: 048
  2. CHILDRENS MOTRIN [Suspect]
     Active Substance: IBUPROFEN
     Indication: EAR PAIN
     Dosage: 5 ML ONE DOSE
     Route: 048
     Dates: start: 20180221, end: 2018

REACTIONS (4)
  - Eye pruritus [Recovered/Resolved]
  - Product use in unapproved indication [Unknown]
  - Eye swelling [Recovered/Resolved]
  - Hypersensitivity [Recovered/Resolved]

NARRATIVE: CASE EVENT DATE: 20180221
